FAERS Safety Report 7338505-6 (Version None)
Quarter: 2011Q1

REPORT INFORMATION
  Report Type: 
  Country: None (occurrence: None)
  Receive Date: 20110308
  Receipt Date: 20110224
  Transmission Date: 20110831
  Serious: Yes (Hospitalization)
  Sender: FDA-Public Use
  Company Number: CHPA2011BR03316

PATIENT
  Sex: Female

DRUGS (7)
  1. TEGRETOL-XR [Suspect]
     Dosage: 1.5 DF, BID
     Route: 048
     Dates: end: 20110101
  2. TEGRETOL-XR [Suspect]
     Dosage: 400 MG, BID
     Route: 048
     Dates: start: 20110101
  3. BENEFIBER W/ WHEAT DEXTRIN [Suspect]
     Indication: CONSTIPATION
     Dosage: 2 DF, QD
     Route: 048
     Dates: start: 20090101
  4. TEGRETOL-XR [Suspect]
     Indication: ARRHYTHMIA
     Dosage: 200 MG, BID
     Route: 048
     Dates: start: 20080101
  5. DIOVAN [Suspect]
     Indication: HYPERTENSION
     Dosage: 320 MG, QD
     Route: 048
  6. DIOVAN HCT [Suspect]
     Indication: HYPERTENSION
     Dosage: UNK, UNK
     Route: 048
     Dates: start: 20010101
  7. HYGROTON [Suspect]
     Dosage: UNK, UNK
     Route: 065

REACTIONS (1)
  - URINARY INCONTINENCE [None]
